FAERS Safety Report 24783741 (Version 1)
Quarter: 2024Q4

REPORT INFORMATION
  Report Type: Spontaneous
  Country: HR (occurrence: HR)
  Receive Date: 20241227
  Receipt Date: 20241227
  Transmission Date: 20250115
  Serious: Yes (Other)
  Sender: SAMSUNG BIOEPIS
  Company Number: HR-SAMSUNG BIOEPIS-SB-2024-38965

PATIENT
  Sex: Female

DRUGS (1)
  1. INFLIXIMAB [Suspect]
     Active Substance: INFLIXIMAB
     Indication: Colitis ulcerative
     Dosage: 100 MG VIAL;
     Route: 042
     Dates: start: 202308

REACTIONS (2)
  - Asphyxia [Recovered/Resolved]
  - Vomiting [Recovered/Resolved]
